FAERS Safety Report 7479788-1 (Version None)
Quarter: 2011Q2

REPORT INFORMATION
  Report Type: 
  Country: None (occurrence: None)
  Receive Date: 20110513
  Receipt Date: 20110511
  Transmission Date: 20111010
  Serious: Yes (Disabling)
  Sender: FDA-Public Use
  Company Number: US-MERCK-1009USA05567

PATIENT
  Age: 46 Year
  Sex: Female

DRUGS (2)
  1. FOSAMAX PLUS D [Suspect]
     Indication: OSTEOPENIA
     Route: 048
     Dates: start: 20041201, end: 20070901
  2. FOSAMAX [Suspect]
     Route: 048
     Dates: start: 20070618

REACTIONS (4)
  - INCREASED TENDENCY TO BRUISE [None]
  - TOOTH DISORDER [None]
  - BONE LOSS [None]
  - TOOTH DISCOLOURATION [None]
